FAERS Safety Report 10355031 (Version 1)
Quarter: 2014Q3

REPORT INFORMATION
  Report Type: Spontaneous
  Country: US (occurrence: None)
  Receive Date: 20140729
  Receipt Date: 20140729
  Transmission Date: 20150326
  Serious: No
  Sender: FDA-Public Use
  Company Number: None

PATIENT
  Age: 61 Year
  Sex: Male
  Weight: 78.47 kg

DRUGS (1)
  1. FINASTERIDE 5MG NO BRAND NAME ON BOTTLE [Suspect]
     Active Substance: FINASTERIDE
     Indication: ALOPECIA
     Dosage: 1 PILL BROKE IN HALF/ 5 MG ONCE DAILY TAKEN BY MOUTH
     Route: 048
     Dates: start: 20120718, end: 20140716

REACTIONS (2)
  - Movement disorder [None]
  - Sexual dysfunction [None]

NARRATIVE: CASE EVENT DATE: 20140726
